FAERS Safety Report 24648782 (Version 2)
Quarter: 2024Q4

REPORT INFORMATION
  Report Type: Spontaneous
  Country: JP (occurrence: JP)
  Receive Date: 20241121
  Receipt Date: 20241127
  Transmission Date: 20250115
  Serious: Yes (Hospitalization, Other)
  Sender: PFIZER
  Company Number: JP-MLMSERVICE-20241111-PI252570-00182-1

PATIENT
  Age: 48 Year
  Sex: Male

DRUGS (7)
  1. IRINOTECAN HYDROCHLORIDE [Suspect]
     Active Substance: IRINOTECAN HYDROCHLORIDE
     Indication: Pancreatic carcinoma stage IV
     Dosage: INITIAL 11 DOSE OF DECREASED AND RETURNED TO 100% DOSE AFTER (TOTAL 23 CHEMO CYCLE)
  2. IRINOTECAN HYDROCHLORIDE [Suspect]
     Active Substance: IRINOTECAN HYDROCHLORIDE
     Dosage: DOSE DECREASE
  3. IRINOTECAN HYDROCHLORIDE [Suspect]
     Active Substance: IRINOTECAN HYDROCHLORIDE
     Dosage: RETURN TO 100% DOSAGE
  4. OXALIPLATIN [Suspect]
     Active Substance: OXALIPLATIN
     Indication: Pancreatic carcinoma stage IV
     Dosage: INITIAL 11 DOSE DECREASED AT 80% OF THE REGIMEN + RETURNED TO 100% DOSE AFTER (TOTAL 23 CHEMO CYCLE)
  5. OXALIPLATIN [Suspect]
     Active Substance: OXALIPLATIN
     Dosage: OXALIPLATIN TO 80%
  6. OXALIPLATIN [Suspect]
     Active Substance: OXALIPLATIN
     Dosage: RETURN TO 100% DOSAGE
  7. TS-1 [Suspect]
     Active Substance: GIMERACIL\OTERACIL POTASSIUM\TEGAFUR
     Indication: Pancreatic carcinoma stage IV
     Dosage: 80 MG/M2/DAY

REACTIONS (6)
  - Diabetes mellitus [Recovered/Resolved]
  - Hepatic fibrosis [Unknown]
  - Nausea [Unknown]
  - Diarrhoea [Unknown]
  - Abdominal pain [Unknown]
  - Platelet count decreased [Unknown]
